FAERS Safety Report 8269853-3 (Version None)
Quarter: 2012Q2

REPORT INFORMATION
  Report Type: 
  Country: None (occurrence: None)
  Receive Date: 20120410
  Receipt Date: 20120330
  Transmission Date: 20120825
  Serious: Yes (Other)
  Sender: FDA-Public Use
  Company Number: CA-JNJFOC-20120400396

PATIENT
  Sex: Female
  Weight: 60.2 kg

DRUGS (6)
  1. REMICADE [Suspect]
     Indication: CROHN'S DISEASE
     Dosage: HAD 51 INFUSIONS
     Route: 042
  2. CALCIUM CARBONATE [Concomitant]
     Route: 065
  3. VITAMIN D [Concomitant]
     Route: 065
  4. IMURAN [Concomitant]
     Route: 065
  5. VITAMIN B-12 [Concomitant]
     Route: 065
  6. RABEPRAZOLE SODIUM [Concomitant]
     Route: 065

REACTIONS (3)
  - WEIGHT DECREASED [None]
  - VOMITING [None]
  - DIARRHOEA [None]
